FAERS Safety Report 6521466-7 (Version None)
Quarter: 2009Q4

REPORT INFORMATION
  Report Type: 
  Country: None (occurrence: None)
  Receive Date: 20091230
  Receipt Date: 20091216
  Transmission Date: 20100525
  Serious: Yes (Other)
  Sender: FDA-Public Use
  Company Number: JP-ROCHE-676801

PATIENT
  Sex: Male
  Weight: 49 kg

DRUGS (1)
  1. TAMIFLU [Suspect]
     Indication: INFLUENZA
     Route: 048
     Dates: start: 20091213, end: 20091213

REACTIONS (1)
  - ABNORMAL BEHAVIOUR [None]
